FAERS Safety Report 20438380 (Version 1)
Quarter: 2022Q1

REPORT INFORMATION
  Report Type: Spontaneous
  Country: US (occurrence: US)
  Receive Date: 20220207
  Receipt Date: 20220207
  Transmission Date: 20220424
  Serious: No
  Sender: FDA-Public Use
  Company Number: US-PFIZER INC-2021645230

PATIENT
  Age: 63 Year
  Sex: Male

DRUGS (6)
  1. INLYTA [Suspect]
     Active Substance: AXITINIB
     Dosage: 5MG/TAKE 1 TABLET BY MOUTH EVERY OTHER DAY ALTERNATING WITH 2 TABLETS DAILY WITH OR WITHOUT FOOD
     Route: 048
  2. VALSARTAN [Concomitant]
     Active Substance: VALSARTAN
     Dosage: UNK
  3. LEVOTHYROXINE SODIUM [Concomitant]
     Active Substance: LEVOTHYROXINE SODIUM
     Dosage: UNK
  4. AMLODIPINE BESYLATE [Concomitant]
     Active Substance: AMLODIPINE BESYLATE
     Dosage: UNK
  5. B-COMPLEX [VITAMIN B COMPLEX] [Concomitant]
     Indication: Renal cell carcinoma
     Dosage: UNK
  6. ALLEGRA D-12 HOUR [Concomitant]
     Active Substance: FEXOFENADINE HYDROCHLORIDE\PSEUDOEPHEDRINE HYDROCHLORIDE
     Dosage: UNK, 2X/DAY

REACTIONS (2)
  - Off label use [Unknown]
  - Diarrhoea [Unknown]
